FAERS Safety Report 8862522 (Version 1)
Quarter: 2012Q4

REPORT INFORMATION
  Report Type: Report from Study
  Country: CA (occurrence: CA)
  Receive Date: 20121026
  Receipt Date: 20121026
  Transmission Date: 20130627
  Serious: No
  Sender: FDA-Public Use
  Company Number: CA-JNJFOC-20121013225

PATIENT
  Age: 48 Year
  Sex: Female
  Weight: 79.7 kg

DRUGS (2)
  1. REMICADE [Suspect]
     Indication: COLITIS ULCERATIVE
     Route: 042
     Dates: start: 200904
  2. VITAMIN [Concomitant]
     Route: 065

REACTIONS (2)
  - Sinusitis [Recovered/Resolved]
  - Herpes zoster [Recovering/Resolving]
